FAERS Safety Report 17426473 (Version 1)
Quarter: 2020Q1

REPORT INFORMATION
  Report Type: Spontaneous
  Country: FR (occurrence: FR)
  Receive Date: 20200218
  Receipt Date: 20200218
  Transmission Date: 20200409
  Serious: Yes (Other)
  Sender: FDA-Public Use
  Company Number: FR-TEVA-2020-FR-1186732

PATIENT
  Age: 65 Year
  Sex: Male
  Weight: 86 kg

DRUGS (3)
  1. AUGMENTIN [Suspect]
     Active Substance: AMOXICILLIN\CLAVULANATE POTASSIUM
     Indication: ARTHRITIS
     Dosage: 3GRAMS
     Route: 048
     Dates: start: 20191227, end: 20200128
  2. LEVOFLOXACINE [Suspect]
     Active Substance: LEVOFLOXACIN
     Indication: ARTHRITIS
     Dosage: 750MG
     Route: 048
     Dates: start: 20200102, end: 20200106
  3. AMOXICILLINE [Suspect]
     Active Substance: AMOXICILLIN
     Indication: ARTHRITIS
     Dosage: 3GRAMS
     Route: 048
     Dates: start: 20191227, end: 20200128

REACTIONS (1)
  - Tendon rupture [Not Recovered/Not Resolved]

NARRATIVE: CASE EVENT DATE: 20200106
